FAERS Safety Report 6812862-9 (Version None)
Quarter: 2010Q3

REPORT INFORMATION
  Report Type: 
  Country: None (occurrence: None)
  Receive Date: 20100701
  Receipt Date: 20100621
  Transmission Date: 20110219
  Serious: Yes (Hospitalization)
  Sender: FDA-Public Use
  Company Number: NZ-ELI_LILLY_AND_COMPANY-NZ201006005562

PATIENT
  Sex: Female

DRUGS (4)
  1. OLANZAPINE [Suspect]
     Indication: SCHIZOPHRENIA
     Dosage: 30 MG, UNK
  2. OLANZAPINE [Suspect]
     Dosage: UNK, UNKNOWN
     Route: 065
     Dates: end: 20100120
  3. OLANZAPINE [Suspect]
     Dosage: 30 MG, UNK
     Dates: start: 20100203
  4. LORAZEPAM [Concomitant]

REACTIONS (3)
  - CATATONIA [None]
  - EATING DISORDER [None]
  - OVERDOSE [None]
